FAERS Safety Report 10227180 (Version 1)
Quarter: 2014Q2

REPORT INFORMATION
  Report Type: Spontaneous
  Country: US (occurrence: None)
  Receive Date: 20140609
  Receipt Date: 20140609
  Transmission Date: 20141212
  Serious: Yes (Hospitalization)
  Sender: FDA-Public Use
  Company Number: None

PATIENT
  Age: 56 Year
  Sex: Male
  Weight: 90.7 kg

DRUGS (2)
  1. INTERFERON 2B (INTRON-A) [Suspect]
     Dosage: 43 MILLIONS IU?01/14/2013
     Dates: start: 20130114
  2. ZOLOFT [Concomitant]

REACTIONS (4)
  - Depression [None]
  - Suicidal ideation [None]
  - Confusional state [None]
  - Delirium [None]
